FAERS Safety Report 8958686 (Version 1)
Quarter: 2012Q4

REPORT INFORMATION
  Report Type: 
  Country: US (occurrence: US)
  Receive Date: 20121211
  Receipt Date: 20121211
  Transmission Date: 20130627
  Serious: No
  Sender: FDA-Public Use
  Company Number: US-BAUSCH-2012BL001694

PATIENT
  Age: 58 Year
  Sex: Female

DRUGS (4)
  1. TOBRAMYCIN AND DEXAMETHASONE [Suspect]
     Indication: EYE INFLAMMATION
     Route: 047
     Dates: start: 20120127, end: 20120201
  2. MINOCYCLINE [Concomitant]
     Indication: EYE INFLAMMATION
     Route: 048
     Dates: start: 20120127, end: 20120129
  3. DOXYCYCLINE [Concomitant]
     Indication: EYE INFLAMMATION
     Route: 048
     Dates: start: 20120130, end: 20120208
  4. LEVOTHYROXINE [Concomitant]
     Indication: THYROID DISORDER
     Route: 048
     Dates: start: 200912

REACTIONS (5)
  - Eye swelling [Recovered/Resolved]
  - Dyspnoea [Recovered/Resolved]
  - Chest discomfort [Recovered/Resolved]
  - Dysgeusia [Recovered/Resolved]
  - Urticaria [Recovered/Resolved]
